FAERS Safety Report 15081346 (Version 1)
Quarter: 2018Q2

REPORT INFORMATION
  Report Type: Spontaneous
  Country: US (occurrence: US)
  Receive Date: 20180607
  Receipt Date: 20180607
  Transmission Date: 20180711
  Serious: Yes (Other)
  Sender: FDA-Public Use
  Company Number: None

PATIENT
  Age: 19 Year
  Sex: Female
  Weight: 95.71 kg

DRUGS (2)
  1. NEXPLANON [Suspect]
     Active Substance: ETONOGESTREL
     Dates: start: 20170831
  2. VITAMINS (BIOTIN) [Concomitant]

REACTIONS (2)
  - Headache [None]
  - Thrombosis [None]

NARRATIVE: CASE EVENT DATE: 20170908
